FAERS Safety Report 5644490-5 (Version None)
Quarter: 2008Q1

REPORT INFORMATION
  Report Type: 
  Country: None (occurrence: None)
  Receive Date: 20080229
  Receipt Date: 20070119
  Transmission Date: 20080703
  Serious: No
  Sender: FDA-Public Use
  Company Number: A0636313A

PATIENT
  Sex: Female

DRUGS (3)
  1. VALTREX [Suspect]
     Dosage: 1G THREE TIMES PER DAY
     Route: 048
     Dates: start: 20070116
  2. HYDROCHLOROTHIAZIDE [Concomitant]
  3. TAGAMET [Concomitant]

REACTIONS (2)
  - DRUG INEFFECTIVE [None]
  - SKIN DISCOLOURATION [None]
